FAERS Safety Report 15114390 (Version 3)
Quarter: 2018Q3

REPORT INFORMATION
  Report Type: Spontaneous
  Country: HR (occurrence: HR)
  Receive Date: 20180706
  Receipt Date: 20180803
  Transmission Date: 20181010
  Serious: Yes (Hospitalization, Other)
  Sender: FDA-Public Use
  Company Number: HR-PFIZER INC-2018269302

PATIENT
  Age: 50 Year
  Sex: Female

DRUGS (2)
  1. TIANEPTINE [Suspect]
     Active Substance: TIANEPTINE
     Dosage: 15 TABLETS OF TIANEPTIN 12.5 MG
     Dates: start: 2004, end: 2004
  2. SERTRALINE HCL [Suspect]
     Active Substance: SERTRALINE HYDROCHLORIDE
     Dosage: 6 TABLETS OF SERTRALINE 50 MG
     Dates: start: 2004, end: 2004

REACTIONS (13)
  - Tremor [Recovered/Resolved]
  - Hyperreflexia [Recovered/Resolved]
  - Suicide attempt [Recovered/Resolved]
  - Dry mouth [Recovered/Resolved]
  - Coordination abnormal [Recovered/Resolved]
  - Toxicity to various agents [Recovered/Resolved]
  - Fear [Recovered/Resolved]
  - Delirium [Recovered/Resolved]
  - Tension [Recovered/Resolved]
  - Anxiety [Recovered/Resolved]
  - Serotonin syndrome [Unknown]
  - Pyrexia [Recovered/Resolved]
  - Depression [Recovered/Resolved]

NARRATIVE: CASE EVENT DATE: 2004
